FAERS Safety Report 25488091 (Version 2)
Quarter: 2025Q3

REPORT INFORMATION
  Report Type: Spontaneous
  Country: CN (occurrence: CN)
  Receive Date: 20250627
  Receipt Date: 20250703
  Transmission Date: 20251021
  Serious: Yes (Life-Threatening, Hospitalization)
  Sender: BEIGENE
  Company Number: CN-BEIGENE-BGN-2025-010351

PATIENT
  Age: 62 Year

DRUGS (2)
  1. TISLELIZUMAB [Suspect]
     Active Substance: TISLELIZUMAB
     Indication: Renal cancer
  2. TISLELIZUMAB [Suspect]
     Active Substance: TISLELIZUMAB
     Indication: Metastases to pancreas

REACTIONS (7)
  - Cardiac failure acute [Recovering/Resolving]
  - Cardiogenic shock [Recovering/Resolving]
  - Ventricular tachycardia [Recovering/Resolving]
  - Immune-mediated myocarditis [Recovering/Resolving]
  - Immune-mediated myositis [Recovering/Resolving]
  - Peripheral nerve injury [Recovering/Resolving]
  - Immune-mediated myasthenia gravis [Recovering/Resolving]
